FAERS Safety Report 5205278-2 (Version None)
Quarter: 2007Q1

REPORT INFORMATION
  Report Type: 
  Country: None (occurrence: None)
  Receive Date: 20070108
  Receipt Date: 20061229
  Transmission Date: 20070707
  Serious: Yes (Other)
  Sender: FDA-Public Use
  Company Number: CHNY2006NZ03531

PATIENT
  Sex: Female

DRUGS (1)
  1. HABITROL [Suspect]
     Indication: NICOTINE DEPENDENCE
     Dosage: 21 MG, TRANSDERMAL
     Route: 062
     Dates: start: 20061224

REACTIONS (3)
  - MALAISE [None]
  - NAUSEA [None]
  - TREMOR [None]
